FAERS Safety Report 19593284 (Version 1)
Quarter: 2021Q3

REPORT INFORMATION
  Report Type: Spontaneous
  Country: US (occurrence: US)
  Receive Date: 20210722
  Receipt Date: 20210722
  Transmission Date: 20211014
  Serious: Yes (Hospitalization)
  Sender: FDA-Public Use
  Company Number: NVSC2021US165065

PATIENT
  Age: 34 Year
  Sex: Female

DRUGS (2)
  1. RANITIDINE. [Suspect]
     Active Substance: RANITIDINE
     Indication: ABDOMINAL HERNIA
     Dosage: 150 MG, QD
     Route: 048
     Dates: start: 200501, end: 202005
  2. RANITIDINE. [Suspect]
     Active Substance: RANITIDINE
     Indication: ABDOMINAL HERNIA
     Dosage: 150 MG, QD
     Route: 048
     Dates: start: 200501, end: 202005

REACTIONS (2)
  - Breast cancer stage II [Recovered/Resolved]
  - Product use in unapproved indication [Unknown]

NARRATIVE: CASE EVENT DATE: 20180416
